FAERS Safety Report 17586542 (Version 1)
Quarter: 2020Q1

REPORT INFORMATION
  Report Type: Spontaneous
  Country: US (occurrence: US)
  Receive Date: 20200326
  Receipt Date: 20200326
  Transmission Date: 20200409
  Serious: No
  Sender: FDA-Public Use
  Company Number: None

PATIENT
  Age: 54 Year
  Weight: 47.7 kg

DRUGS (16)
  1. VITAMIN B 12 500 MCG, ORAL [Concomitant]
  2. SENNA PLUS, 8.6 - 50 MG, ORAL [Concomitant]
  3. MULTI-VITAMIN, ORAL [Concomitant]
  4. FAMOTIDINE 20 MG, ORAL [Concomitant]
  5. MIRTAZAPINE, 15 MG, ORAL [Concomitant]
  6. NORCO 10 - 325 MG, ORAL [Concomitant]
  7. FERO SUL, 325 MG, ORAL [Concomitant]
  8. FOLIC ACID 1 MG, ORAL [Concomitant]
  9. SUCRALFATE 1 G, ORAL [Concomitant]
  10. SUTENT [Suspect]
     Active Substance: SUNITINIB MALATE
     Indication: GASTRIC CANCER
     Route: 048
     Dates: start: 20200131, end: 20200326
  11. POTASSIUM CITRATE ER, 10 MEQ, ORAL [Concomitant]
  12. DULOXETINE, 60 MG, ORAL [Concomitant]
  13. GABAPENTIN 800 MG, ORAL [Concomitant]
  14. VITAMIN C 500 MG, ORAL [Concomitant]
  15. MIDODRINE 2.5 MG, ORAL [Concomitant]
  16. METOPROLOL TARTRATE 25 MG, ORAL [Concomitant]

REACTIONS (1)
  - Gastrointestinal stromal tumour [None]

NARRATIVE: CASE EVENT DATE: 20200326
